FAERS Safety Report 6986280-7 (Version None)
Quarter: 2010Q3

REPORT INFORMATION
  Report Type: 
  Country: None (occurrence: None)
  Receive Date: 20100915
  Receipt Date: 20090713
  Transmission Date: 20110219
  Serious: No
  Sender: FDA-Public Use
  Company Number: US-WYE-H09777409

PATIENT
  Sex: Female
  Weight: 49.94 kg

DRUGS (5)
  1. PRISTIQ [Suspect]
     Indication: DEPRESSION
     Route: 048
     Dates: start: 20090301
  2. FIBERCON [Concomitant]
  3. ZANTAC [Concomitant]
  4. ASCORBIC ACID/CHONDROITIN SULFATE/GLUCOSAMINE SULFATE/MANGANESE [Concomitant]
  5. TYLENOL PM [Concomitant]

REACTIONS (1)
  - DRUG SCREEN FALSE POSITIVE [None]
